FAERS Safety Report 21671459 (Version 2)
Quarter: 2022Q4

REPORT INFORMATION
  Report Type: Spontaneous
  Country: US (occurrence: US)
  Receive Date: 20221202
  Receipt Date: 20221209
  Transmission Date: 20230113
  Serious: Yes (Hospitalization)
  Sender: FDA-Public Use
  Company Number: US-BIOVITRUM-2022US14091

PATIENT
  Age: 0 Year
  Sex: Male

DRUGS (4)
  1. SYNAGIS [Suspect]
     Active Substance: PALIVIZUMAB
     Indication: Antiviral prophylaxis
     Dosage: 100MG/ML
     Dates: start: 202210
  2. SYNAGIS [Suspect]
     Active Substance: PALIVIZUMAB
     Dosage: 37MG
     Dates: start: 20220928
  3. SYNAGIS [Suspect]
     Active Substance: PALIVIZUMAB
     Dosage: 54MG
     Dates: start: 20221028
  4. SYNAGIS [Suspect]
     Active Substance: PALIVIZUMAB
     Dosage: 69MG
     Dates: start: 20221128

REACTIONS (1)
  - COVID-19 [Unknown]

NARRATIVE: CASE EVENT DATE: 20221108
